FAERS Safety Report 7987105-3 (Version None)
Quarter: 2011Q4

REPORT INFORMATION
  Report Type: 
  Country: None (occurrence: None)
  Receive Date: 20111216
  Receipt Date: 20110613
  Transmission Date: 20120403
  Serious: Yes (Other)
  Sender: FDA-Public Use
  Company Number: US-BRISTOL-MYERS SQUIBB COMPANY-15612625

PATIENT
  Age: 40 Year
  Sex: Female

DRUGS (3)
  1. DEPLIN [Concomitant]
  2. ANAFRANIL [Concomitant]
  3. ABILIFY [Suspect]
     Indication: OBSESSIVE-COMPULSIVE DISORDER
     Route: 048
     Dates: start: 20100101, end: 20110316

REACTIONS (1)
  - AGRANULOCYTOSIS [None]
